FAERS Safety Report 6272807-X (Version None)
Quarter: 2009Q3

REPORT INFORMATION
  Report Type: 
  Country: None (occurrence: None)
  Receive Date: 20090717
  Receipt Date: 20090714
  Transmission Date: 20100115
  Serious: No
  Sender: FDA-Public Use
  Company Number: US-B.I. PHARMACEUTICALS,INC./RIDGEFIELD-2009-BP-08399BP

PATIENT
  Sex: Female

DRUGS (4)
  1. SPIRIVA [Suspect]
     Dates: start: 20090101
  2. ADVAIR HFA [Concomitant]
  3. PROAIR HFA [Concomitant]
     Indication: UNEVALUABLE EVENT
  4. VENTOLIN [Concomitant]
     Indication: UNEVALUABLE EVENT

REACTIONS (1)
  - BURNING SENSATION [None]
